FAERS Safety Report 4602975-4 (Version None)
Quarter: 2005Q2

REPORT INFORMATION
  Report Type: 
  Country: None (occurrence: None)
  Receive Date: 20050214
  Receipt Date: 20041215
  Transmission Date: 20051028
  Serious: No
  Sender: FDA-Public Use
  Company Number: USA041286332

PATIENT
  Age: 53 Year
  Sex: Male

DRUGS (4)
  1. CIALIS [Suspect]
     Dosage: 20 MG
  2. FOLGARD [Concomitant]
  3. TESTOSTERONE [Concomitant]
  4. VIAGRA [Concomitant]

REACTIONS (6)
  - ARTHRALGIA [None]
  - HEADACHE [None]
  - JOINT EFFUSION [None]
  - JOINT STIFFNESS [None]
  - JOINT SWELLING [None]
  - PARAESTHESIA [None]
